APPROVED DRUG PRODUCT: DIPHENHYDRAMINE HYDROCHLORIDE
Active Ingredient: DIPHENHYDRAMINE HYDROCHLORIDE
Strength: 50MG/ML
Dosage Form/Route: INJECTABLE;INJECTION
Application: A040140 | Product #001
Applicant: HOSPIRA INC
Approved: Nov 20, 1998 | RLD: No | RS: No | Type: DISCN